FAERS Safety Report 8611384-2 (Version None)
Quarter: 2012Q3

REPORT INFORMATION
  Report Type: 
  Country: None (occurrence: None)
  Receive Date: 20120822
  Receipt Date: 20120817
  Transmission Date: 20120928
  Serious: Yes (Disabling)
  Sender: FDA-Public Use
  Company Number: US-PFIZER INC-2012164351

PATIENT
  Age: 55 Year
  Sex: Female
  Weight: 90.703 kg

DRUGS (13)
  1. XANAX [Suspect]
     Dosage: 2 MG TABLETS INTO HALF AND TAKING 1 AND HALF TABLET THREE TIMES A DAY
     Route: 048
  2. XANAX [Suspect]
     Dosage: 1 MG, UNK
     Route: 048
  3. XANAX [Suspect]
     Dosage: 2 MG, UNK
     Route: 048
  4. ALPRAZOLAM [Suspect]
     Dosage: 3 MG, 3X/DAY
     Route: 048
     Dates: start: 20120101
  5. ZOCOR [Concomitant]
     Indication: BLOOD CHOLESTEROL INCREASED
     Dosage: UNK
  6. TRICOR [Concomitant]
     Indication: BLOOD VISCOSITY INCREASED
     Dosage: 25 MG, DAILY
     Route: 048
  7. XANAX [Suspect]
     Indication: ANXIETY
     Dosage: 0.25 MG, UNK
     Route: 048
  8. TRICOR [Concomitant]
     Indication: BLOOD CHOLESTEROL ABNORMAL
  9. ALPRAZOLAM [Suspect]
     Indication: ANXIETY
     Dosage: 3 MG (1 AND HALF TABLETS OF 2MG) , 3X/DAY
     Route: 048
     Dates: start: 20120706, end: 20120101
  10. ALPRAZOLAM [Suspect]
     Indication: ATTENTION DEFICIT/HYPERACTIVITY DISORDER
     Dosage: 1 MG, 3X/DAY
     Route: 048
     Dates: start: 20120101, end: 20120101
  11. XANAX [Suspect]
     Dosage: 3 MG, TAKING 1 AND A HALF TABLET OF 2 MG ALPRAZOLAM
     Route: 048
  12. XANAX [Suspect]
     Dosage: 0.5 MG, UNK
     Route: 048
  13. TRICOR [Concomitant]
     Indication: BLOOD TRIGLYCERIDES
     Dosage: 10 MG, DAILY
     Route: 048

REACTIONS (11)
  - ANXIETY [None]
  - AGITATION [None]
  - INTERVERTEBRAL DISC DISORDER [None]
  - CRYING [None]
  - DRUG INEFFECTIVE FOR UNAPPROVED INDICATION [None]
  - FEELING ABNORMAL [None]
  - EMOTIONAL DISORDER [None]
  - PALPITATIONS [None]
  - PANIC ATTACK [None]
  - DRUG INEFFECTIVE [None]
  - OFF LABEL USE [None]
